FAERS Safety Report 7877939-8 (Version None)
Quarter: 2011Q4

REPORT INFORMATION
  Report Type: 
  Country: None (occurrence: None)
  Receive Date: 20111031
  Receipt Date: 20111024
  Transmission Date: 20120403
  Serious: Yes (Hospitalization, Other)
  Sender: FDA-Public Use
  Company Number: RO-ABBOTT-11P-135-0867802-00

PATIENT
  Sex: Male

DRUGS (1)
  1. HUMIRA [Suspect]
     Indication: ANKYLOSING SPONDYLITIS
     Route: 058
     Dates: start: 20110301, end: 20110901

REACTIONS (5)
  - ASTHENIA [None]
  - TUBERCULOSIS GASTROINTESTINAL [None]
  - PYREXIA [None]
  - ASCITES [None]
  - WEIGHT DECREASED [None]
